FAERS Safety Report 10861260 (Version 1)
Quarter: 2015Q1

REPORT INFORMATION
  Report Type: Spontaneous
  Country: GB (occurrence: GB)
  Receive Date: 20150224
  Receipt Date: 20150224
  Transmission Date: 20150721
  Serious: Yes (Other)
  Sender: FDA-Public Use
  Company Number: GB-TEVA-541376ACC

PATIENT
  Age: 64 Year
  Sex: Female

DRUGS (4)
  1. AMOXICILLIN. [Concomitant]
     Active Substance: AMOXICILLIN
     Indication: HIP ARTHROPLASTY
     Dosage: 1500 MILLIGRAM DAILY; 500 MG, TID
     Route: 048
     Dates: start: 20141229
  2. ALENDRONATE [Suspect]
     Active Substance: ALENDRONATE SODIUM
     Indication: OSTEOPOROSIS
     Dosage: 70 MG, UNK
     Route: 048
     Dates: start: 20141212, end: 20150109
  3. ADCAL-D3 [Concomitant]
     Active Substance: CALCIUM CARBONATE\CHOLECALCIFEROL
     Indication: OSTEOPOROSIS
     Dosage: 2 DOSAGE FORMS DAILY; 1 DF, BID
     Route: 048
     Dates: start: 20141212
  4. PARACETAMOL [Concomitant]
     Active Substance: ACETAMINOPHEN
     Indication: HIP FRACTURE
     Dosage: 4 GRAM DAILY; 1 G, QID
     Route: 048
     Dates: start: 20141208

REACTIONS (2)
  - Hepatotoxicity [Recovering/Resolving]
  - Liver function test abnormal [Recovering/Resolving]

NARRATIVE: CASE EVENT DATE: 20150105
